FAERS Safety Report 4921300-2 (Version None)
Quarter: 2006Q1

REPORT INFORMATION
  Report Type: 
  Country: None (occurrence: None)
  Receive Date: 20060221
  Receipt Date: 20060210
  Transmission Date: 20060701
  Serious: Yes (Other)
  Sender: FDA-Public Use
  Company Number: 2006021387

PATIENT
  Age: 77 Year
  Sex: Female

DRUGS (2)
  1. NEURONTIN [Suspect]
     Indication: PAIN
     Dosage: 1500 MG (1 D)
  2. FENTANYL [Concomitant]

REACTIONS (2)
  - RETINAL HAEMORRHAGE [None]
  - VISION BLURRED [None]
